FAERS Safety Report 17200472 (Version 1)
Quarter: 2019Q4

REPORT INFORMATION
  Report Type: Spontaneous
  Country: JP (occurrence: JP)
  Receive Date: 20191226
  Receipt Date: 20191226
  Transmission Date: 20200122
  Serious: Yes (Death, Other)
  Sender: FDA-Public Use
  Company Number: JP-AMGEN-JPNNI2019214747

PATIENT

DRUGS (1)
  1. VECTIBIX [Suspect]
     Active Substance: PANITUMUMAB
     Indication: CARCINOID TUMOUR OF THE APPENDIX
     Dosage: UNK
     Route: 050

REACTIONS (3)
  - Death [Fatal]
  - Gastrointestinal perforation [Unknown]
  - Off label use [Unknown]
